FAERS Safety Report 24554188 (Version 2)
Quarter: 2024Q4

REPORT INFORMATION
  Report Type: Spontaneous
  Country: US (occurrence: US)
  Receive Date: 20241028
  Receipt Date: 20241128
  Transmission Date: 20250115
  Serious: Yes (Other)
  Sender: ORGANON
  Company Number: US-ORGANON-O2410USA001043

PATIENT
  Age: 18 Year
  Sex: Female

DRUGS (1)
  1. NEXPLANON [Suspect]
     Active Substance: ETONOGESTREL
     Indication: Contraception
     Dosage: 1 IMPLANT 68 MG LEFT UPPER ARM
     Route: 059
     Dates: start: 20240821, end: 20241010

REACTIONS (4)
  - Device expulsion [Recovered/Resolved]
  - Implant site irritation [Not Recovered/Not Resolved]
  - Implant site abscess [Recovered/Resolved]
  - Implant site cellulitis [Recovered/Resolved]

NARRATIVE: CASE EVENT DATE: 20240824
